FAERS Safety Report 22352331 (Version 1)
Quarter: 2023Q2

REPORT INFORMATION
  Report Type: Other
  Country: GB (occurrence: GB)
  Receive Date: 20230522
  Receipt Date: 20230522
  Transmission Date: 20230722
  Serious: Yes (Other)
  Sender: FDA-Public Use
  Company Number: GB-SIGMAPHARM LABORATORIES, LLC-2023SIG00031

PATIENT
  Age: 74 Year
  Sex: Female
  Weight: 66 kg

DRUGS (2)
  1. LIOTHYRONINE SODIUM [Suspect]
     Active Substance: LIOTHYRONINE SODIUM
     Indication: Autoimmune thyroiditis
     Dosage: 5 MCG, 2X/DAY
     Route: 048
  2. LEVOTHYROXINE [Concomitant]
     Active Substance: LEVOTHYROXINE
     Indication: Autoimmune thyroiditis

REACTIONS (7)
  - Muscle fatigue [Not Recovered/Not Resolved]
  - Product substitution issue [Unknown]
  - Mental fatigue [Not Recovered/Not Resolved]
  - Asthenopia [Unknown]
  - Anxiety [Unknown]
  - Atrial fibrillation [Unknown]
  - Underdose [Unknown]
